FAERS Safety Report 6298820-4 (Version None)
Quarter: 2009Q3

REPORT INFORMATION
  Report Type: 
  Country: None (occurrence: None)
  Receive Date: 20090806
  Receipt Date: 20090728
  Transmission Date: 20100115
  Serious: Yes (Hospitalization)
  Sender: FDA-Public Use
  Company Number: US-PFIZER INC-2009246610

PATIENT

DRUGS (3)
  1. GEODON [Suspect]
  2. LAMICTAL [Suspect]
     Dosage: 150 MG, 2X/DAY
  3. RISPERDAL [Suspect]
     Dosage: 2 MG

REACTIONS (1)
  - ANAPHYLACTIC REACTION [None]
